FAERS Safety Report 7081927-1 (Version None)
Quarter: 2010Q4

REPORT INFORMATION
  Report Type: 
  Country: None (occurrence: None)
  Receive Date: 20101103
  Receipt Date: 20101027
  Transmission Date: 20110411
  Serious: Yes (Other)
  Sender: FDA-Public Use
  Company Number: GB-PFIZER INC-2010137261

PATIENT
  Age: 42 Year
  Sex: Female

DRUGS (1)
  1. CHAMPIX [Suspect]
     Indication: SMOKING CESSATION THERAPY
     Dosage: 0.5 MG, UNK
     Dates: start: 20101008

REACTIONS (4)
  - OROPHARYNGEAL BLISTERING [None]
  - PALPITATIONS [None]
  - RASH [None]
  - VAGINAL MUCOSAL BLISTERING [None]
